FAERS Safety Report 22373722 (Version 1)
Quarter: 2023Q2

REPORT INFORMATION
  Report Type: Spontaneous
  Country: US (occurrence: None)
  Receive Date: 20230526
  Receipt Date: 20230526
  Transmission Date: 20230722
  Serious: No
  Sender: FDA-Public Use
  Company Number: None

PATIENT
  Sex: Female

DRUGS (17)
  1. VERZENIO [Suspect]
     Active Substance: ABEMACICLIB
     Indication: Breast cancer female
     Dosage: FREQUENCY : TWICE A DAY;?
     Route: 048
  2. ARIMIDEX [Concomitant]
     Active Substance: ANASTROZOLE
  3. BETAMETHASONE (TOPICAL) [Concomitant]
  4. CALCIUM 500/D [OTC] [DSC] [Concomitant]
  5. CALCIUM CITRATE [Concomitant]
     Active Substance: CALCIUM CITRATE
  6. CHONDROITIN SULFATE (BOVINE) [Concomitant]
     Active Substance: CHONDROITIN SULFATE (BOVINE)
  7. FISH OIL CONCENTRATE [OTC] [Concomitant]
  8. FLUOOURACIL (SYSTEMIC) [Concomitant]
  9. GLUCOSAMINE [Concomitant]
     Active Substance: GLUCOSAMINE
  10. LACTBACILUS [Concomitant]
  11. MULTIVITAMINS/FLOURIDE (WITH ADE) [Concomitant]
  12. RALOXIFENE [Concomitant]
     Active Substance: RALOXIFENE
  13. SUPREP BOWEL PREP [Concomitant]
     Active Substance: MAGNESIUM SULFATE\POTASSIUM SULFATE\SODIUM SULFATE
  14. VERZENIO [Concomitant]
     Active Substance: ABEMACICLIB
  15. VITAMIN C (SYN) [Concomitant]
  16. ZINC 15 [OTC] [Concomitant]
  17. MAGNESIUM CITRATE [Concomitant]
     Active Substance: MAGNESIUM CITRATE

REACTIONS (1)
  - Metastasis [None]
